FAERS Safety Report 7091970-4 (Version None)
Quarter: 2010Q4

REPORT INFORMATION
  Report Type: 
  Country: None (occurrence: None)
  Receive Date: 20101101
  Receipt Date: 20101008
  Transmission Date: 20110411
  Serious: Yes (Other)
  Sender: FDA-Public Use
  Company Number: 20109506

PATIENT
  Sex: Male

DRUGS (1)
  1. LIORESAL [Suspect]
     Indication: MUSCLE SPASTICITY
     Dosage: 840.1 MCG, DAILY, INTRATHECAL
     Route: 037

REACTIONS (3)
  - DEVICE RELATED INFECTION [None]
  - INCISION SITE ERYTHEMA [None]
  - SKIN EROSION [None]
